FAERS Safety Report 6551173-6 (Version None)
Quarter: 2010Q1

REPORT INFORMATION
  Report Type: 
  Country: None (occurrence: None)
  Receive Date: 20100121
  Receipt Date: 20100107
  Transmission Date: 20100710
  Serious: Yes (Hospitalization)
  Sender: FDA-Public Use
  Company Number: 2010AL000109

PATIENT
  Age: 76 Year
  Sex: Female

DRUGS (4)
  1. DICLOFENAC SODIUM [Suspect]
     Indication: MUSCULOSKELETAL PAIN
     Dosage: 75 MG;BID;PO
     Route: 048
  2. LITHIUM [Concomitant]
  3. FLUVOXAMINE [Concomitant]
  4. OTC PAIN MEDS [Concomitant]

REACTIONS (7)
  - ANTIPSYCHOTIC DRUG LEVEL ABOVE THERAPEUTIC [None]
  - CEREBELLAR SYNDROME [None]
  - DELIRIUM [None]
  - DISORIENTATION [None]
  - DRUG INTERACTION [None]
  - DYSARTHRIA [None]
  - THERAPEUTIC AGENT TOXICITY [None]
